FAERS Safety Report 25136999 (Version 1)
Quarter: 2025Q1

REPORT INFORMATION
  Report Type: Spontaneous
  Country: GB (occurrence: GB)
  Receive Date: 20250328
  Receipt Date: 20250328
  Transmission Date: 20250409
  Serious: Yes (Hospitalization, Other)
  Sender: ELI LILLY AND COMPANY
  Company Number: None

PATIENT

DRUGS (2)
  1. BARICITINIB [Suspect]
     Active Substance: BARICITINIB
     Indication: Aicardi-Goutieres syndrome
     Route: 065
  2. BARICITINIB [Suspect]
     Active Substance: BARICITINIB
     Route: 065

REACTIONS (2)
  - Varicella [Recovered/Resolved]
  - Off label use [Unknown]
